FAERS Safety Report 9277386 (Version 1)
Quarter: 2013Q2

REPORT INFORMATION
  Report Type: Spontaneous
  Country: US (occurrence: None)
  Receive Date: 20130506
  Receipt Date: 20130506
  Transmission Date: 20140414
  Serious: Yes (Death, Hospitalization)
  Sender: FDA-Public Use
  Company Number: None

PATIENT
  Age: 64 Year
  Sex: Male
  Weight: 82.7 kg

DRUGS (1)
  1. CYTARABINE [Suspect]
     Dates: end: 20130404

REACTIONS (7)
  - Unresponsive to stimuli [None]
  - Diarrhoea [None]
  - Pancytopenia [None]
  - Bacterial sepsis [None]
  - Renal failure acute [None]
  - Hypotension [None]
  - Respiratory arrest [None]
